FAERS Safety Report 20083292 (Version 5)
Quarter: 2022Q1

REPORT INFORMATION
  Report Type: Spontaneous
  Country: AT (occurrence: AT)
  Receive Date: 20211117
  Receipt Date: 20220131
  Transmission Date: 20220423
  Serious: Yes (Death, Other)
  Sender: FDA-Public Use
  Company Number: AT-ROCHE-2951438

PATIENT
  Age: 52 Year
  Sex: Male

DRUGS (4)
  1. POLATUZUMAB VEDOTIN [Suspect]
     Active Substance: POLATUZUMAB VEDOTIN
     Indication: Diffuse large B-cell lymphoma
     Dosage: THIRD LINE OF TREATMENT
     Route: 065
     Dates: start: 20210401, end: 20210430
  2. OBINUTUZUMAB [Suspect]
     Active Substance: OBINUTUZUMAB
     Indication: Diffuse large B-cell lymphoma
     Route: 065
     Dates: start: 20210513, end: 20210515
  3. RITUXIMAB [Suspect]
     Active Substance: RITUXIMAB
     Indication: Diffuse large B-cell lymphoma
     Dosage: 2 RCHOP CYCLES (1ST LINE OF TREATMENT)
     Route: 065
     Dates: start: 20201201, end: 20210101
  4. RITUXIMAB [Suspect]
     Active Substance: RITUXIMAB
     Dosage: 2ND LINE OF TREATMENT
     Route: 065
     Dates: start: 20210201, end: 20210301

REACTIONS (6)
  - Depression [Unknown]
  - Lymphoma [Unknown]
  - Off label use [Unknown]
  - Frustration tolerance decreased [Unknown]
  - Pneumonia [Recovered/Resolved]
  - Death [Fatal]

NARRATIVE: CASE EVENT DATE: 20210930
